FAERS Safety Report 25214957 (Version 2)
Quarter: 2025Q3

REPORT INFORMATION
  Report Type: Spontaneous
  Country: US (occurrence: US)
  Receive Date: 20250418
  Receipt Date: 20250809
  Transmission Date: 20251020
  Serious: Yes (Life-Threatening, Hospitalization, Other)
  Sender: ALEXION PHARMACEUTICALS
  Company Number: US-AstraZeneca-CH-00850358A

PATIENT
  Age: 83 Year
  Sex: Female

DRUGS (3)
  1. BRILINTA [Suspect]
     Active Substance: TICAGRELOR
     Indication: Acute myocardial infarction
     Dosage: 90 MILLIGRAM, BID
  2. BRILINTA [Suspect]
     Active Substance: TICAGRELOR
     Indication: Coronary arterial stent insertion
  3. ASPIRIN [Concomitant]
     Active Substance: ASPIRIN
     Dosage: 81 MILLIGRAM, QD
     Route: 065

REACTIONS (1)
  - Haemorrhagic arteriovenous malformation [Recovered/Resolved]
